FAERS Safety Report 7750907 (Version 2)
Quarter: 2018Q4

REPORT INFORMATION
  Report Type: Spontaneous
  Country: GB (occurrence: GB)
  Receive Date: 20110106
  Receipt Date: 20181127
  Transmission Date: 20190205
  Serious: Yes (Other)
  Sender: FDA-Public Use
  Company Number: GB-JNJFOC-20101207454

PATIENT

DRUGS (1)
  1. INFLIXIMAB, RECOMBINANT [Suspect]
     Active Substance: INFLIXIMAB
     Indication: CROHN^S DISEASE
     Dosage: COMPLETED INDUCTION REGIMEN AT 0, 2, AND 6 WEEKS; DATES UNSPECIFIED
     Route: 042

REACTIONS (1)
  - Anaphylactic reaction [Unknown]
